FAERS Safety Report 21887277 (Version 1)
Quarter: 2023Q1

REPORT INFORMATION
  Report Type: Spontaneous
  Country: US (occurrence: US)
  Receive Date: 20230119
  Receipt Date: 20230119
  Transmission Date: 20230417
  Serious: No
  Sender: FDA-Public Use
  Company Number: US-AMGEN-USASP2023005024

PATIENT
  Sex: Male

DRUGS (3)
  1. XGEVA [Suspect]
     Active Substance: DENOSUMAB
     Indication: Prophylaxis
     Dosage: 120 MILLIGRAM, QMO
     Route: 058
  2. CASODEX [Concomitant]
     Active Substance: BICALUTAMIDE
     Indication: Blood testosterone
     Dosage: UNK
     Route: 058
  3. ELIGARD [Concomitant]
     Active Substance: LEUPROLIDE ACETATE
     Dosage: UNK UNK, QMO
     Route: 065

REACTIONS (1)
  - Tooth fracture [Unknown]

NARRATIVE: CASE EVENT DATE: 20230109
